FAERS Safety Report 10178570 (Version 7)
Quarter: 2015Q2

REPORT INFORMATION
  Report Type: Report from Study
  Country: US (occurrence: US)
  Receive Date: 20140519
  Receipt Date: 20150609
  Transmission Date: 20150821
  Serious: Yes (Hospitalization)
  Sender: FDA-Public Use
  Company Number: US-SA-2014SA062879

PATIENT
  Age: 72 Year
  Sex: Female
  Weight: 60 kg

DRUGS (29)
  1. LUMIZYME [Suspect]
     Active Substance: ALGLUCOSIDASE ALFA
     Indication: GLYCOGEN STORAGE DISEASE TYPE II
     Route: 042
     Dates: start: 20060829
  2. LUMIZYME [Suspect]
     Active Substance: ALGLUCOSIDASE ALFA
     Indication: RHEUMATOID ARTHRITIS
     Route: 042
     Dates: start: 20060829
  3. LUMIZYME [Suspect]
     Active Substance: ALGLUCOSIDASE ALFA
     Indication: GLYCOGEN STORAGE DISEASE TYPE II
     Route: 042
     Dates: start: 20060829
  4. VITAMIN D/CALCIUM [Concomitant]
  5. ALPRAZOLAM. [Concomitant]
     Active Substance: ALPRAZOLAM
  6. LUMIZYME [Suspect]
     Active Substance: ALGLUCOSIDASE ALFA
     Indication: RHEUMATOID ARTHRITIS
     Route: 042
     Dates: start: 20060829
  7. LUMIZYME [Suspect]
     Active Substance: ALGLUCOSIDASE ALFA
     Indication: GLYCOGEN STORAGE DISEASE TYPE II
     Route: 042
     Dates: start: 20060829
  8. COUMADIN [Concomitant]
     Active Substance: WARFARIN SODIUM
  9. LUMIZYME [Suspect]
     Active Substance: ALGLUCOSIDASE ALFA
     Indication: RHEUMATOID ARTHRITIS
     Route: 042
     Dates: start: 20060829
  10. LUMIZYME [Suspect]
     Active Substance: ALGLUCOSIDASE ALFA
     Indication: GLYCOGEN STORAGE DISEASE TYPE II
     Route: 042
     Dates: start: 20060829
  11. LUMIZYME [Suspect]
     Active Substance: ALGLUCOSIDASE ALFA
     Indication: RHEUMATOID ARTHRITIS
     Route: 042
     Dates: start: 20060829
  12. NORMAL SALINE [Concomitant]
     Active Substance: SODIUM CHLORIDE
  13. RECLAST [Concomitant]
     Active Substance: ZOLEDRONIC ACID
  14. ADVAIR HFA [Concomitant]
     Active Substance: FLUTICASONE PROPIONATE\SALMETEROL XINAFOATE
  15. PROTONIX [Concomitant]
     Active Substance: PANTOPRAZOLE SODIUM
  16. ZOFRAN [Concomitant]
     Active Substance: ONDANSETRON HYDROCHLORIDE
  17. ACETAMINOPHEN. [Concomitant]
     Active Substance: ACETAMINOPHEN
  18. MECLIZINE [Concomitant]
     Active Substance: MECLIZINE\MECLIZINE HYDROCHLORIDE
  19. CELEXA [Concomitant]
     Active Substance: CITALOPRAM HYDROBROMIDE
  20. DITROPAN [Concomitant]
     Active Substance: OXYBUTYNIN CHLORIDE
  21. LUMIZYME [Suspect]
     Active Substance: ALGLUCOSIDASE ALFA
     Indication: RHEUMATOID ARTHRITIS
     Route: 042
     Dates: start: 20060829
  22. LUMIZYME [Suspect]
     Active Substance: ALGLUCOSIDASE ALFA
     Indication: GLYCOGEN STORAGE DISEASE TYPE II
     Route: 042
     Dates: start: 20060829
  23. ASPIRIN. [Concomitant]
     Active Substance: ASPIRIN
  24. ERGOCALCIFEROL. [Concomitant]
     Active Substance: ERGOCALCIFEROL
  25. PANTHENOL/RETINOL/THIAMINE HYDROCHLORIDE/ASCORBIC ACID/ERGOCALCIFEROL/FOLIC ACID/RIBOFLAVIN/NICOTINA [Concomitant]
  26. OXYGEN. [Concomitant]
     Active Substance: OXYGEN
  27. VICODIN [Concomitant]
     Active Substance: ACETAMINOPHEN\HYDROCODONE BITARTRATE
  28. BYSTOLIC [Concomitant]
     Active Substance: NEBIVOLOL HYDROCHLORIDE
  29. REMICADE [Concomitant]
     Active Substance: INFLIXIMAB

REACTIONS (4)
  - Fall [Unknown]
  - Hospitalisation [Not Recovered/Not Resolved]
  - Fractured sacrum [Recovered/Resolved]
  - Off label use [Unknown]

NARRATIVE: CASE EVENT DATE: 20140420
